FAERS Safety Report 8187807-2 (Version None)
Quarter: 2012Q1

REPORT INFORMATION
  Report Type: 
  Country: None (occurrence: None)
  Receive Date: 20120306
  Receipt Date: 20120131
  Transmission Date: 20120608
  Serious: Yes (Hospitalization, Other)
  Sender: FDA-Public Use
  Company Number: US-ROCHE-1001659

PATIENT
  Sex: Female
  Weight: 113.5 kg

DRUGS (1)
  1. ACCUTANE [Suspect]
     Indication: ACNE
     Dosage: STRENGTH: 40 MG AND 20 MG
     Route: 048
     Dates: start: 20001206

REACTIONS (6)
  - HAEMORRHOIDS [None]
  - CROHN'S DISEASE [None]
  - INFLAMMATORY BOWEL DISEASE [None]
  - ANXIETY [None]
  - DEPRESSION [None]
  - DIVERTICULUM [None]
